FAERS Safety Report 4521853-2 (Version None)
Quarter: 2004Q4

REPORT INFORMATION
  Report Type: 
  Country: None (occurrence: None)
  Receive Date: 20041207
  Receipt Date: 20041123
  Transmission Date: 20050328
  Serious: Yes (Hospitalization)
  Sender: FDA-Public Use
  Company Number: HQ0473704FEB2002

PATIENT
  Age: 54 Year
  Sex: Female

DRUGS (14)
  1. DIMETAPP [Suspect]
     Indication: HYPERSENSITIVITY
     Dosage: ORAL
     Route: 048
     Dates: end: 20000401
  2. DIMETAPP [Suspect]
     Indication: INFLUENZA
     Dosage: ORAL
     Route: 048
     Dates: end: 20000401
  3. DIMETAPP [Suspect]
     Indication: NASOPHARYNGITIS
     Dosage: ORAL
     Route: 048
     Dates: end: 20000401
  4. ALKA-SELTZER PLUS COLD (ACETYLSALICYLIC ACID/CHLORPHENAMINE MALEATE/PH [Suspect]
     Indication: HYPERSENSITIVITY
     Dosage: ORAL
     Route: 048
  5. ALKA-SELTZER PLUS COLD (ACETYLSALICYLIC ACID/CHLORPHENAMINE MALEATE/PH [Suspect]
     Indication: INFLUENZA
     Dosage: ORAL
     Route: 048
  6. ALKA-SELTZER PLUS COLD (ACETYLSALICYLIC ACID/CHLORPHENAMINE MALEATE/PH [Suspect]
     Indication: NASOPHARYNGITIS
     Dosage: ORAL
     Route: 048
  7. ROBITUSSIN CF (GUAIFENESIN/DEXTROMETHORPHAN/PHENYLPROPANOLAMINE, SYRUP [Suspect]
     Indication: NASOPHARYNGITIS
     Dosage: ORAL
     Route: 048
     Dates: end: 20000401
  8. SINE-OFF N.D. (PARACETAMOL/PHENYLPROPANOLAMINE HYDROCHLORIDE, ) [Suspect]
     Indication: HYPERSENSITIVITY
     Dosage: ORAL
     Route: 048
  9. SINE-OFF N.D. (PARACETAMOL/PHENYLPROPANOLAMINE HYDROCHLORIDE, ) [Suspect]
     Indication: INFLUENZA
     Dosage: ORAL
     Route: 048
  10. SINE-OFF N.D. (PARACETAMOL/PHENYLPROPANOLAMINE HYDROCHLORIDE, ) [Suspect]
     Indication: NASOPHARYNGITIS
     Dosage: ORAL
     Route: 048
  11. TAVIST D (CLEMASTINE FUMARATE/PHENYLPROPANOLAMINE HYDROCHLORIDE, ) [Suspect]
     Indication: NASOPHARYNGITIS
     Dosage: ORAL
     Route: 048
  12. TRIAMINIC (CHLORPHENAMINE MALEATE/PHENYLPROPANOLAMINE HYDROCHLORIDE, S [Suspect]
     Indication: HYPERSENSITIVITY
     Dosage: ORAL
     Route: 048
  13. TRIAMINIC (CHLORPHENAMINE MALEATE/PHENYLPROPANOLAMINE HYDROCHLORIDE, S [Suspect]
     Indication: INFLUENZA
     Dosage: ORAL
     Route: 048
  14. TRIAMINIC (CHLORPHENAMINE MALEATE/PHENYLPROPANOLAMINE HYDROCHLORIDE, S [Suspect]
     Indication: NASOPHARYNGITIS
     Dosage: ORAL
     Route: 048

REACTIONS (12)
  - ALCOHOL WITHDRAWAL SYNDROME [None]
  - APHASIA [None]
  - CONFUSIONAL STATE [None]
  - CORONARY ARTERY OCCLUSION [None]
  - DELIRIUM TREMENS [None]
  - DISEASE RECURRENCE [None]
  - FACIAL PALSY [None]
  - HAEMORRHAGIC STROKE [None]
  - HEMIPARESIS [None]
  - HYDROCEPHALUS [None]
  - HYPERTENSION [None]
  - MYOCLONUS [None]
